FAERS Safety Report 7420479-0 (Version None)
Quarter: 2011Q2

REPORT INFORMATION
  Report Type: 
  Country: None (occurrence: None)
  Receive Date: 20110418
  Receipt Date: 20110413
  Transmission Date: 20111010
  Serious: Yes (Life-Threatening, Other)
  Sender: FDA-Public Use
  Company Number: JP-SANOFI-AVENTIS-2010SA063704

PATIENT
  Age: 72 Year
  Sex: Male

DRUGS (10)
  1. CALCIUM LEVOFOLINATE [Suspect]
     Indication: LARGE INTESTINE CARCINOMA
     Route: 041
     Dates: start: 20101004
  2. FERROUS CITRATE [Concomitant]
     Dates: start: 20101001
  3. FLUOROURACIL [Suspect]
     Indication: LARGE INTESTINE CARCINOMA
     Route: 040
     Dates: start: 20101004
  4. RAMOSETRON [Concomitant]
     Dates: start: 20101006
  5. DEXAMETHASONE [Concomitant]
     Dates: start: 20101004, end: 20101004
  6. ELPLAT [Suspect]
     Indication: LARGE INTESTINE CARCINOMA
     Route: 041
     Dates: start: 20101004, end: 20101004
  7. PROTECADIN [Concomitant]
     Dates: start: 20101001
  8. AVASTIN [Suspect]
     Indication: LARGE INTESTINE CARCINOMA
     Route: 041
     Dates: start: 20101004, end: 20101004
  9. TALION [Concomitant]
     Dates: start: 20101001
  10. EMEND [Concomitant]
     Dates: start: 20101004

REACTIONS (13)
  - ATRIAL FIBRILLATION [None]
  - PSEUDOMONAS TEST POSITIVE [None]
  - ANTIBIOTIC RESISTANT STAPHYLOCOCCUS TEST POSITIVE [None]
  - SEPSIS [None]
  - VENTRICULAR FIBRILLATION [None]
  - HYPOXIC-ISCHAEMIC ENCEPHALOPATHY [None]
  - PNEUMONIA [None]
  - FALL [None]
  - ALTERED STATE OF CONSCIOUSNESS [None]
  - HAEMOGLOBIN DECREASED [None]
  - CARDIO-RESPIRATORY ARREST [None]
  - SUPRAVENTRICULAR TACHYCARDIA [None]
  - WHITE BLOOD CELL COUNT DECREASED [None]
